FAERS Safety Report 6142368-4 (Version None)
Quarter: 2009Q2

REPORT INFORMATION
  Report Type: 
  Country: None (occurrence: None)
  Receive Date: 20090403
  Receipt Date: 20090325
  Transmission Date: 20091009
  Serious: Yes (Hospitalization)
  Sender: FDA-Public Use
  Company Number: TW-PFIZER INC-2009185561

PATIENT

DRUGS (12)
  1. BLINDED *PLACEBO [Suspect]
     Indication: COLORECTAL CANCER
     Dosage: 37.5 MG, 1X/DAY
     Route: 048
     Dates: start: 20080908, end: 20090316
  2. BLINDED SUNITINIB MALATE [Suspect]
     Indication: COLORECTAL CANCER
     Dosage: 37.5 MG, 1X/DAY
     Route: 048
     Dates: start: 20080908, end: 20090316
  3. IRINOTECAN HCL [Suspect]
     Indication: COLORECTAL CANCER
     Dosage: 280 MG, EVERY 2 WEEKS
     Route: 042
     Dates: start: 20080908, end: 20090304
  4. FLUOROURACIL [Suspect]
     Indication: COLORECTAL CANCER
     Dosage: 600 MG, EVERY 2 WEEKS
     Route: 040
     Dates: start: 20080908, end: 20090304
  5. FLUOROURACIL [Suspect]
     Dosage: 3700 MG, EVERY 2 WEEKS
     Route: 041
     Dates: start: 20080908, end: 20090306
  6. LEUCOVORIN CALCIUM [Suspect]
     Indication: COLORECTAL CANCER
     Dosage: 600 MG, EVERY 2 WEEKS
     Route: 042
     Dates: start: 20080908, end: 20090304
  7. TAMSULOSIN [Concomitant]
     Indication: BENIGN PROSTATIC HYPERPLASIA
     Dosage: 0.2 MG, 1X/DAY
     Route: 048
     Dates: start: 20080908
  8. ROSIGLITAZONE [Concomitant]
     Indication: HYPERGLYCAEMIA
     Dosage: 4 MG, 1X/DAY
     Route: 048
     Dates: start: 20080908
  9. GLYBURIDE [Concomitant]
     Indication: HYPERGLYCAEMIA
     Dosage: 5 MG, 1X/DAY
     Route: 048
     Dates: start: 20080908
  10. ACEMETACIN [Concomitant]
     Indication: ANALGESIC THERAPY
     Dosage: 90 MG, 2X/DAY
     Route: 048
     Dates: start: 20090310
  11. BENTYL [Concomitant]
     Indication: ANALGESIC THERAPY
     Dosage: 10 MG, 3X/DAY
     Route: 048
     Dates: start: 20090310
  12. MAGNESIUM OXIDE [Concomitant]
     Indication: CONSTIPATION
     Dosage: 250 MG, 3X/DAY
     Route: 048
     Dates: start: 20090310

REACTIONS (2)
  - HAEMATURIA [None]
  - HYDRONEPHROSIS [None]
